FAERS Safety Report 9013977 (Version 1)
Quarter: 2012Q4

REPORT INFORMATION
  Report Type: Spontaneous
  Country: US (occurrence: None)
  Receive Date: 20121231
  Receipt Date: 20121231
  Transmission Date: 20130627
  Serious: Yes (Hospitalization)
  Sender: FDA-Public Use
  Company Number: B0855196A

PATIENT
  Age: 53 Year
  Sex: Female

DRUGS (7)
  1. SUMATRIPTAN SUCCINATE [Suspect]
     Indication: MIGRAINE
  2. IMITREX [Suspect]
     Indication: MIGRAINE
     Route: 058
  3. PROPRANOLOL HYDROCHLORIDE [Concomitant]
  4. NORTRIPTYLINE [Concomitant]
  5. MAGNESIUM SALT [Concomitant]
  6. RIBOFLAVINE [Concomitant]
  7. NAPROXEN SODIUM [Concomitant]

REACTIONS (11)
  - Myocardial ischaemia [None]
  - Headache [None]
  - Raynaud^s phenomenon [None]
  - Sinus bradycardia [None]
  - Migraine [None]
  - Ventricular tachycardia [None]
  - Left atrial dilatation [None]
  - Diastolic dysfunction [None]
  - Arteriosclerosis coronary artery [None]
  - Coronary artery stenosis [None]
  - Prinzmetal angina [None]
